FAERS Safety Report 9171644 (Version 1)
Quarter: 2013Q1

REPORT INFORMATION
  Report Type: Spontaneous
  Country: US (occurrence: US)
  Receive Date: 20130319
  Receipt Date: 20130319
  Transmission Date: 20140127
  Serious: Yes (Other)
  Sender: FDA-Public Use
  Company Number: US-PFIZER INC-2013088992

PATIENT
  Age: 57 Year
  Sex: Male
  Weight: 87.08 kg

DRUGS (6)
  1. NEURONTIN [Suspect]
     Indication: DIABETIC NEUROPATHY
     Dosage: 800 MG, 2X/DAY
     Route: 048
  2. NEURONTIN [Suspect]
     Indication: SENSATION OF HEAVINESS
  3. NEURONTIN [Suspect]
     Indication: HYPOAESTHESIA
  4. SYNTHROID [Concomitant]
     Indication: THYROID DISORDER
     Dosage: 50 MG, 1X/DAY
  5. COZAAR [Concomitant]
     Indication: BLOOD PRESSURE ABNORMAL
     Dosage: 25 MG, 1X/DAY
  6. LANTUS [Concomitant]
     Indication: DIABETES MELLITUS
     Dosage: UNK

REACTIONS (2)
  - Hepatitis C [Unknown]
  - Liver disorder [Unknown]
